FAERS Safety Report 6810235-6 (Version None)
Quarter: 2010Q2

REPORT INFORMATION
  Report Type: 
  Country: None (occurrence: None)
  Receive Date: 20100630
  Receipt Date: 20100531
  Transmission Date: 20101027
  Serious: Yes (Other)
  Sender: FDA-Public Use
  Company Number: JP-PFIZER INC-2010052184

PATIENT
  Age: 85 Year
  Sex: Female

DRUGS (4)
  1. CELECOX [Suspect]
     Indication: INJURY
     Dosage: 100 MG, UNKNOWN/D
     Route: 048
     Dates: end: 20100329
  2. NORVASC [Concomitant]
     Dosage: UNK
  3. YODEL [Concomitant]
     Dosage: UNK
     Route: 048
  4. LASIX [Concomitant]
     Dosage: UNK
     Route: 048
     Dates: start: 20100329

REACTIONS (1)
  - OEDEMA [None]
